FAERS Safety Report 9723801 (Version 1)
Quarter: 2013Q4

REPORT INFORMATION
  Report Type: Spontaneous
  Country: US (occurrence: US)
  Receive Date: 20131202
  Receipt Date: 20131202
  Transmission Date: 20140711
  Serious: Yes (Hospitalization, Other)
  Sender: FDA-Public Use
  Company Number: US-TEVA-447516USA

PATIENT
  Age: 43 Year
  Sex: Male

DRUGS (5)
  1. BLEOMYCIN [Suspect]
     Indication: HODGKIN^S DISEASE
     Route: 065
  2. DACARBAZINE [Suspect]
     Indication: HODGKIN^S DISEASE
     Route: 065
  3. DOXORUBICIN [Suspect]
     Indication: HODGKIN^S DISEASE
     Route: 065
  4. ACETAMINOPHEN W/OXYCODONE [Suspect]
     Route: 065
  5. VINBLASTINE [Suspect]
     Indication: HODGKIN^S DISEASE
     Route: 065

REACTIONS (1)
  - Clostridium difficile infection [Recovering/Resolving]
